FAERS Safety Report 21359254 (Version 1)
Quarter: 2022Q3

REPORT INFORMATION
  Report Type: Spontaneous
  Country: US (occurrence: US)
  Receive Date: 20220921
  Receipt Date: 20220921
  Transmission Date: 20221027
  Serious: No
  Sender: FDA-Public Use
  Company Number: US-PFIZER INC-202201173633

PATIENT
  Age: 18 Year
  Sex: Female

DRUGS (1)
  1. SIROLIMUS [Suspect]
     Active Substance: SIROLIMUS
     Indication: Nephrolithiasis
     Dosage: UNK

REACTIONS (7)
  - Hypophagia [Unknown]
  - Abdominal pain lower [Not Recovered/Not Resolved]
  - Hypoglycaemia [Unknown]
  - Blood glucose fluctuation [Unknown]
  - Blood glucose increased [Unknown]
  - Pancreatic disorder [Unknown]
  - Off label use [Unknown]
